FAERS Safety Report 5235051-0 (Version None)
Quarter: 2007Q1

REPORT INFORMATION
  Report Type: 
  Country: None (occurrence: None)
  Receive Date: 20070207
  Receipt Date: 20070125
  Transmission Date: 20070707
  Serious: Yes (Death, Life-Threatening, Hospitalization)
  Sender: FDA-Public Use
  Company Number: 14762

PATIENT
  Age: 75 Year
  Sex: Male

DRUGS (13)
  1. CYTARABINE [Suspect]
     Indication: ACUTE MYELOID LEUKAEMIA
     Dosage: 2.55 G BID IV
     Route: 042
     Dates: start: 20060517, end: 20060522
  2. PANTOPRAZOLE SODIUM [Concomitant]
  3. FLECAINIDE ACETATE [Concomitant]
  4. DIGOXIN [Concomitant]
  5. CALCIUM CITRATE WITH VITAMIN D [Concomitant]
  6. DEXAMETHASONE [Concomitant]
  7. VALACYCLOVIR HCL [Concomitant]
  8. TYLENOL [Concomitant]
  9. CEFEPIME [Concomitant]
  10. DAPTOMYCIN [Concomitant]
  11. ONDANSETRON [Concomitant]
  12. BENADRYL [Concomitant]
  13. ALLOPURINOL SODIUM [Concomitant]

REACTIONS (10)
  - BLOOD CULTURE POSITIVE [None]
  - BLOOD PRESSURE DECREASED [None]
  - CULTURE POSITIVE [None]
  - CULTURE URINE POSITIVE [None]
  - DISEASE PROGRESSION [None]
  - ENTEROBACTER INFECTION [None]
  - NEUTROPENIA [None]
  - NO THERAPEUTIC RESPONSE [None]
  - SEPSIS [None]
  - STAPHYLOCOCCAL INFECTION [None]
